FAERS Safety Report 5674938-1 (Version None)
Quarter: 2008Q1

REPORT INFORMATION
  Report Type: 
  Country: None (occurrence: None)
  Receive Date: 20080320
  Receipt Date: 20080311
  Transmission Date: 20080703
  Serious: Yes (Other)
  Sender: FDA-Public Use
  Company Number: US-PFIZER INC-2008009094

PATIENT
  Sex: Female
  Weight: 99.545 kg

DRUGS (11)
  1. CHANTIX [Suspect]
     Indication: SMOKING CESSATION THERAPY
     Route: 048
  2. PHENOBARBITAL TAB [Suspect]
  3. BETA-LACTAM ANTIBACTERIALS, PENICILLINS [Suspect]
  4. DEPAKOTE [Suspect]
  5. TEGRETOL [Suspect]
  6. VIRAMUNE [Concomitant]
  7. TRUVADA [Concomitant]
  8. CYMBALTA [Concomitant]
     Route: 048
  9. TRAZODONE HCL [Concomitant]
     Route: 048
  10. VISTARIL [Concomitant]
     Route: 048
  11. ROZEREM [Concomitant]
     Route: 048

REACTIONS (8)
  - BLOOD PRESSURE DECREASED [None]
  - CONVERSION DISORDER [None]
  - HIV INFECTION [None]
  - HYPERSENSITIVITY [None]
  - MEDICATION ERROR [None]
  - MENTAL DISORDER [None]
  - POLYSUBSTANCE DEPENDENCE [None]
  - VIRAL LOAD INCREASED [None]
